FAERS Safety Report 8093290-8 (Version None)
Quarter: 2012Q1

REPORT INFORMATION
  Report Type: 
  Country: None (occurrence: None)
  Receive Date: 20120128
  Receipt Date: 20110913
  Transmission Date: 20120608
  Serious: No
  Sender: FDA-Public Use
  Company Number: US-ABBOTT-11P-163-0834635-00

PATIENT
  Age: 62 Year
  Sex: Female

DRUGS (7)
  1. METFORMIN HCL [Concomitant]
     Indication: DIABETES MELLITUS
     Route: 048
  2. PROZAC [Concomitant]
     Indication: PANIC ATTACK
  3. LANSOPRAZOLE [Concomitant]
     Indication: GASTROOESOPHAGEAL REFLUX DISEASE
     Route: 048
  4. CRESTOR [Concomitant]
     Indication: BLOOD CHOLESTEROL INCREASED
     Route: 048
  5. PROZAC [Concomitant]
     Indication: ANXIETY
     Route: 048
  6. DIOVAN [Concomitant]
     Indication: BLOOD PRESSURE INCREASED
     Route: 048
  7. HUMIRA [Suspect]
     Indication: PSORIASIS
     Dates: start: 20110609

REACTIONS (6)
  - DRUG INEFFECTIVE [None]
  - INJECTION SITE ERYTHEMA [None]
  - INJECTION SITE NODULE [None]
  - RASH PAPULAR [None]
  - INJECTION SITE PAIN [None]
  - INJECTION SITE PRURITUS [None]
